FAERS Safety Report 25741323 (Version 1)
Quarter: 2025Q3

REPORT INFORMATION
  Report Type: Spontaneous
  Country: EU (occurrence: EU)
  Receive Date: 20250829
  Receipt Date: 20250829
  Transmission Date: 20251020
  Serious: Yes (Other)
  Sender: ORGANON
  Company Number: EU-SANDOZ-SDZ2025AT058972

PATIENT
  Sex: Female

DRUGS (2)
  1. DESLORATADINE [Suspect]
     Active Substance: DESLORATADINE
     Indication: Chronic spontaneous urticaria
     Dosage: 20 MILLIGRAM, QD (10 MG, BID)
     Route: 065
  2. OMALIZUMAB [Suspect]
     Active Substance: OMALIZUMAB
     Indication: Chronic spontaneous urticaria
     Dosage: 450 MG, EVERY 3 WEEKS
     Route: 065
     Dates: end: 20231106

REACTIONS (2)
  - Chronic spontaneous urticaria [Unknown]
  - Condition aggravated [Unknown]
